FAERS Safety Report 6986617-9 (Version None)
Quarter: 2010Q3

REPORT INFORMATION
  Report Type: 
  Country: None (occurrence: None)
  Receive Date: 20100827
  Receipt Date: 20100309
  Transmission Date: 20110219
  Serious: Yes (Hospitalization)
  Sender: FDA-Public Use
  Company Number: AMAG201000156

PATIENT
  Age: 91 Year
  Sex: Male
  Weight: 68.9 kg

DRUGS (2)
  1. FERAHEME [Suspect]
     Indication: IRON DEFICIENCY ANAEMIA
     Dosage: 510 MG, SINGLE, INTRAVENOUS
     Route: 042
     Dates: start: 20100204, end: 20100204
  2. FERAHEME [Suspect]
     Indication: IRON DEFICIENCY ANAEMIA
     Dosage: 510 MG, SINGLE, INTRAVENOUS
     Route: 042
     Dates: start: 20100216, end: 20100216

REACTIONS (5)
  - BACK PAIN [None]
  - CHEST PAIN [None]
  - HYPOTENSION [None]
  - HYPOXIA [None]
  - TACHYCARDIA [None]
